FAERS Safety Report 7152970-9 (Version None)
Quarter: 2010Q4

REPORT INFORMATION
  Report Type: 
  Country: None (occurrence: None)
  Receive Date: 20101209
  Receipt Date: 20101209
  Transmission Date: 20110411
  Serious: Yes (Other)
  Sender: FDA-Public Use
  Company Number: None

PATIENT
  Age: 76 Year
  Sex: Male
  Weight: 81.6475 kg

DRUGS (2)
  1. XALATAN [Suspect]
     Indication: GLAUCOMA
     Dosage: ONE DROP IN EYE DAILY OPHTHALMIC
     Route: 047
     Dates: start: 20100915, end: 20101125
  2. TIMOLOL GFS-XE-0.5% FALCON PHARMACEUTICAL [Suspect]
     Indication: GLAUCOMA
     Dosage: ONE DROP IN EYE DAILY OPHTHALMIC
     Route: 047
     Dates: start: 20101203, end: 20101206

REACTIONS (2)
  - AUTOIMMUNE DISORDER [None]
  - DRUG HYPERSENSITIVITY [None]
